FAERS Safety Report 11668916 (Version 3)
Quarter: 2015Q4

REPORT INFORMATION
  Report Type: Spontaneous
  Country: US (occurrence: US)
  Receive Date: 20151027
  Receipt Date: 20151217
  Transmission Date: 20160304
  Serious: Yes (Other)
  Sender: FDA-Public Use
  Company Number: US-PFIZER INC-2015357981

PATIENT
  Age: 65 Year
  Sex: Female
  Weight: 82 kg

DRUGS (24)
  1. LYRICA [Suspect]
     Active Substance: PREGABALIN
     Indication: BACK DISORDER
     Dosage: 150 MG, 3X/DAY
     Route: 048
     Dates: start: 20140820, end: 20150721
  2. GABAPENTIN. [Suspect]
     Active Substance: GABAPENTIN
     Indication: DIABETIC NEUROPATHY
     Dosage: 300 MG, 3X/DAY
  3. CLONAZEPAM. [Concomitant]
     Active Substance: CLONAZEPAM
     Indication: ANXIETY
  4. 5-HTP [Concomitant]
     Active Substance: OXITRIPTAN
     Dosage: 100 MG, DAILY
  5. FISH OIL OMEGA 3, 6, AND 9 [Concomitant]
     Dosage: 4 DF, DAILY
  6. GINKGO BILOBA [Concomitant]
     Active Substance: GINKGO
     Dosage: 60 MG, 2X/DAY
  7. FIBER [Concomitant]
     Active Substance: PSYLLIUM HUSK
     Dosage: 4 DF, DAILY
     Route: 048
  8. CHLORZOXAZONE. [Concomitant]
     Active Substance: CHLORZOXAZONE
     Indication: MUSCLE SPASMS
     Dosage: 500 MG, 3X/DAY
  9. SLOW MAG [Concomitant]
     Active Substance: MAGNESIUM CHLORIDE
     Indication: CARPAL TUNNEL SYNDROME
  10. POTASSIUM [Concomitant]
     Active Substance: POTASSIUM
     Dosage: 99 MG, DAILY
  11. GABAPENTIN. [Suspect]
     Active Substance: GABAPENTIN
     Dosage: 300 MG, 2X/DAY
     Dates: start: 20150721
  12. NEXIUM 24HR [Concomitant]
     Active Substance: ESOMEPRAZOLE MAGNESIUM
     Dosage: 22.3 MG, 2X/DAY
     Route: 048
     Dates: start: 2014
  13. NAPROXEN. [Concomitant]
     Active Substance: NAPROXEN
     Dosage: 440 MG, 2X/DAY
     Dates: start: 2014
  14. DULOXETINE HYDROCHLORIDE. [Concomitant]
     Active Substance: DULOXETINE HYDROCHLORIDE
     Indication: NEURALGIA
     Dosage: 60 MG, DAILY
     Dates: start: 2015
  15. SLOW MAG [Concomitant]
     Active Substance: MAGNESIUM CHLORIDE
     Indication: NEURALGIA
     Dosage: 1 DF, 2X/DAY
  16. ZINC [Concomitant]
     Active Substance: ZINC\ZINC CHLORIDE
     Dosage: 50 MG, DAILY
  17. CLONAZEPAM. [Concomitant]
     Active Substance: CLONAZEPAM
     Indication: DEPRESSION
     Dosage: 0.5 MG, 3X/DAY
     Route: 048
     Dates: start: 2006
  18. RESTASIS [Concomitant]
     Active Substance: CYCLOSPORINE
     Dosage: 0.05 %, 2X/DAY
     Dates: start: 201506
  19. VITAMIN D3 [Concomitant]
     Active Substance: CHOLECALCIFEROL
     Dosage: 100000 IU, 2X/DAY
  20. METOPROLOL [Concomitant]
     Active Substance: METOPROLOL
     Dosage: 50 MG, DAILY
     Route: 048
     Dates: start: 2012
  21. PERI-COLACE [Concomitant]
     Active Substance: CASANTHRANOL\DOCUSATE SODIUM
     Dosage: 50MG DOCUSATE SODIUM AND 8.6MG SENNOSIDES, 1 IN THE AM
  22. LYRICA [Suspect]
     Active Substance: PREGABALIN
     Indication: DIABETIC NEUROPATHY
     Dosage: 150 MG, 2X/DAY
     Route: 048
     Dates: start: 201402
  23. LUTEIN [Concomitant]
     Active Substance: LUTEIN
     Dosage: 20 MG, 1X/DAY
     Route: 048
  24. TUMS [Concomitant]
     Active Substance: CALCIUM CARBONATE
     Dosage: 4000 MG, DAILY
     Route: 048

REACTIONS (1)
  - Weight increased [Recovering/Resolving]
